FAERS Safety Report 19393160 (Version 2)
Quarter: 2021Q4

REPORT INFORMATION
  Report Type: Spontaneous
  Country: US (occurrence: US)
  Receive Date: 20210609
  Receipt Date: 20211221
  Transmission Date: 20220303
  Serious: Yes (Hospitalization)
  Sender: FDA-Public Use
  Company Number: US-SA-SAC20210608000461

PATIENT
  Age: 66 Year
  Sex: Female

DRUGS (16)
  1. DUPIXENT [Suspect]
     Active Substance: DUPILUMAB
     Indication: Rhinitis allergic
     Dosage: 300 MG, QOW
     Route: 058
     Dates: start: 2018
  2. DUPIXENT [Suspect]
     Active Substance: DUPILUMAB
     Indication: Dermatitis atopic
  3. PANTOPRAZOLE SODIUM [Concomitant]
     Active Substance: PANTOPRAZOLE SODIUM
     Dosage: 20 MG
  4. GABAPENTIN [Concomitant]
     Active Substance: GABAPENTIN
     Dosage: 100 MG
  5. METHOCARBAMOL [Concomitant]
     Active Substance: METHOCARBAMOL
     Dosage: 500 MG
  6. LEFLUNOMIDE [Concomitant]
     Active Substance: LEFLUNOMIDE
     Dosage: 10MG
  7. LISINOPRIL [Concomitant]
     Active Substance: LISINOPRIL
     Dosage: 10MG
  8. METOPROLOL SUCCINATE [Concomitant]
     Active Substance: METOPROLOL SUCCINATE
     Dosage: UNK
  9. ASPIRIN [Concomitant]
     Active Substance: ASPIRIN
     Dosage: 81MG
  10. OXYCONTIN [Concomitant]
     Active Substance: OXYCODONE HYDROCHLORIDE
     Dosage: 10 MG
  11. AMLODIPINE [Concomitant]
     Active Substance: AMLODIPINE BESYLATE
  12. ATORVASTATIN [Concomitant]
     Active Substance: ATORVASTATIN
     Dosage: UNK
  13. ELIQUIS [Concomitant]
     Active Substance: APIXABAN
     Dosage: 2.5 MG
  14. IBUPROFEN [Concomitant]
     Active Substance: IBUPROFEN
     Dosage: 200 MG
  15. PREDNISONE [Concomitant]
     Active Substance: PREDNISONE
     Dosage: 10 MG
  16. METFORMIN [Concomitant]
     Active Substance: METFORMIN HYDROCHLORIDE
     Dosage: 1000MG

REACTIONS (3)
  - Surgery [Unknown]
  - Hospitalisation [Unknown]
  - Product use in unapproved indication [Unknown]

NARRATIVE: CASE EVENT DATE: 20180101
